FAERS Safety Report 6313366-2 (Version None)
Quarter: 2009Q3

REPORT INFORMATION
  Report Type: 
  Country: None (occurrence: None)
  Receive Date: 20090814
  Receipt Date: 20090814
  Transmission Date: 20100115
  Serious: Yes (Hospitalization)
  Sender: FDA-Public Use
  Company Number: None

PATIENT
  Age: 36 Year
  Sex: Female
  Weight: 54.4316 kg

DRUGS (4)
  1. VENOFER [Suspect]
     Indication: IRON DEFICIENCY ANAEMIA
     Dosage: 500MG ONCE IV  3 DOSES
     Route: 042
     Dates: start: 20090615, end: 20090812
  2. NAPROSYN [Concomitant]
  3. LYRICA [Concomitant]
  4. TRAMADOL HCL [Concomitant]

REACTIONS (6)
  - BLOOD PRESSURE IMMEASURABLE [None]
  - BRADYCARDIA [None]
  - CONVULSION [None]
  - FOAMING AT MOUTH [None]
  - HYPERHIDROSIS [None]
  - HYPOTENSION [None]
